FAERS Safety Report 25347814 (Version 1)
Quarter: 2025Q2

REPORT INFORMATION
  Report Type: Spontaneous
  Country: US (occurrence: None)
  Receive Date: 20250522
  Receipt Date: 20250522
  Transmission Date: 20250717
  Serious: Yes (Hospitalization)
  Sender: FDA-CTU
  Company Number: None

PATIENT
  Sex: Female

DRUGS (2)
  1. ARANESP [Suspect]
     Active Substance: DARBEPOETIN ALFA
     Indication: Renal transplant
     Route: 058
     Dates: start: 20250404
  2. NEUPOGEN [Suspect]
     Active Substance: FILGRASTIM

REACTIONS (3)
  - Haemoglobin decreased [None]
  - Pain [None]
  - Headache [None]
